FAERS Safety Report 8385999 (Version 2)
Quarter: 2016Q3

REPORT INFORMATION
  Report Type: Spontaneous
  Country: GR (occurrence: GR)
  Receive Date: 20120202
  Receipt Date: 20160906
  Transmission Date: 20161109
  Serious: Yes (Death, Other)
  Sender: FDA-Public Use
  Company Number: PHHY2012GR008369

PATIENT
  Sex: Female

DRUGS (5)
  1. TASIGNA [Suspect]
     Active Substance: NILOTINIB
     Dosage: 300 MG, BID
     Route: 048
  2. CYTARABINE. [Suspect]
     Active Substance: CYTARABINE
     Indication: ACUTE MYELOID LEUKAEMIA
     Route: 065
  3. TASIGNA [Suspect]
     Active Substance: NILOTINIB
     Indication: CHRONIC MYELOID LEUKAEMIA
     Dosage: 300 MG, BID
     Route: 048
  4. IDARUBICIN [Suspect]
     Active Substance: IDARUBICIN
     Indication: ACUTE MYELOID LEUKAEMIA
     Route: 065
  5. TASIGNA [Suspect]
     Active Substance: NILOTINIB
     Dosage: 150 MG, BID
     Route: 048

REACTIONS (13)
  - Sarcoma [Unknown]
  - Haematotoxicity [Unknown]
  - Sepsis [Fatal]
  - Blast crisis in myelogenous leukaemia [Unknown]
  - Bone pain [Unknown]
  - Decreased appetite [Unknown]
  - Bone marrow disorder [Unknown]
  - Weight decreased [Unknown]
  - Chloroma [Unknown]
  - Lymphadenopathy [Unknown]
  - Abdominal pain lower [Unknown]
  - Drug ineffective [Unknown]
  - Acute myeloid leukaemia [Unknown]
